FAERS Safety Report 6345342-8 (Version None)
Quarter: 2009Q3

REPORT INFORMATION
  Report Type: 
  Country: None (occurrence: None)
  Receive Date: 20090821
  Receipt Date: 20090602
  Transmission Date: 20100115
  Serious: No
  Sender: FDA-Public Use
  Company Number: 8047310

PATIENT
  Sex: Female
  Weight: 60 kg

DRUGS (1)
  1. CIMZIA [Suspect]
     Indication: CROHN'S DISEASE
     Dosage: 400 MG /M

REACTIONS (5)
  - FLUID RETENTION [None]
  - JOINT STIFFNESS [None]
  - LIMB DISCOMFORT [None]
  - SWELLING [None]
  - WEIGHT INCREASED [None]
